FAERS Safety Report 22220050 (Version 1)
Quarter: 2023Q2

REPORT INFORMATION
  Report Type: Spontaneous
  Country: US (occurrence: US)
  Receive Date: 20230417
  Receipt Date: 20230417
  Transmission Date: 20230721
  Serious: Yes (Death, Other)
  Sender: FDA-Public Use
  Company Number: US-AMERICAN REGENT INC-2023000897

PATIENT
  Sex: Male

DRUGS (2)
  1. DEXAMETHASONE SODIUM PHOSPHATE [Suspect]
     Active Substance: DEXAMETHASONE SODIUM PHOSPHATE
     Indication: Pharyngitis streptococcal
     Dosage: UNK, SINGLE
     Route: 030
  2. PENICILLIN [Concomitant]
     Active Substance: PENICILLIN
     Indication: Pharyngitis streptococcal
     Dosage: UNK, SINGLE
     Route: 030

REACTIONS (5)
  - Hyperglycaemic hyperosmolar nonketotic syndrome [Fatal]
  - Condition aggravated [Fatal]
  - Dehydration [Unknown]
  - Hyperglycaemia [None]
  - Product use in unapproved indication [Unknown]
